FAERS Safety Report 25976434 (Version 1)
Quarter: 2025Q4

REPORT INFORMATION
  Report Type: Spontaneous
  Country: EU (occurrence: EU)
  Receive Date: 20251029
  Receipt Date: 20251029
  Transmission Date: 20260118
  Serious: Yes (Hospitalization)
  Sender: ANI
  Company Number: EU-ANIPHARMA-2025-FR-000133

PATIENT
  Age: 87 Year
  Sex: Female
  Weight: 63 kg

DRUGS (5)
  1. CANDESARTAN CILEXETIL [Suspect]
     Active Substance: CANDESARTAN CILEXETIL
     Indication: Product used for unknown indication
     Dosage: 0.5 DOSAGE FORM, QD
     Dates: end: 20250908
  2. HYDROXYUREA [Suspect]
     Active Substance: HYDROXYUREA
     Dates: start: 202110, end: 20250908
  3. KARDEGIC [Suspect]
     Active Substance: ASPIRIN DL-LYSINE
  4. LATANOPROST [Suspect]
     Active Substance: LATANOPROST
  5. ELIQUIS [Suspect]
     Active Substance: APIXABAN
     Dosage: 5 MILLIGRAM, QD

REACTIONS (5)
  - Skin ulcer [Unknown]
  - Phlebitis [Unknown]
  - Pyrexia [Unknown]
  - Decreased appetite [Unknown]
  - Gait disturbance [Unknown]

NARRATIVE: CASE EVENT DATE: 20250515
